FAERS Safety Report 9969743 (Version 1)
Quarter: 2014Q1

REPORT INFORMATION
  Report Type: Spontaneous
  Country: US (occurrence: None)
  Receive Date: 20140304
  Receipt Date: 20140304
  Transmission Date: 20141002
  Serious: Yes (Other)
  Sender: FDA-Public Use
  Company Number: None

PATIENT
  Age: 41 Year
  Sex: Female
  Weight: 72.58 kg

DRUGS (1)
  1. KETACONAZOLE [Suspect]
     Indication: TINEA VERSICOLOUR
     Dosage: ONCE THEN A WK 18R; TAKEN BY MOUTH
     Dates: start: 20140220, end: 20140227

REACTIONS (2)
  - Urticaria [None]
  - Hallucination, auditory [None]
